FAERS Safety Report 6703174-2 (Version None)
Quarter: 2010Q2

REPORT INFORMATION
  Report Type: 
  Country: None (occurrence: None)
  Receive Date: 20100430
  Receipt Date: 20100423
  Transmission Date: 20101027
  Serious: No
  Sender: FDA-Public Use
  Company Number: US-BIOGENIDEC-2010BI013685

PATIENT
  Sex: Male

DRUGS (3)
  1. AVONEX [Suspect]
     Indication: MULTIPLE SCLEROSIS
     Route: 030
     Dates: end: 20070901
  2. AVONEX [Suspect]
     Route: 030
     Dates: start: 20080701, end: 20081202
  3. AVONEX [Suspect]
     Route: 030
     Dates: start: 20090820

REACTIONS (2)
  - HEARING IMPAIRED [None]
  - MEMORY IMPAIRMENT [None]
